FAERS Safety Report 4743546-9 (Version None)
Quarter: 2005Q3

REPORT INFORMATION
  Report Type: 
  Country: None (occurrence: None)
  Receive Date: 20050812
  Receipt Date: 20050802
  Transmission Date: 20060218
  Serious: Yes (Other)
  Sender: FDA-Public Use
  Company Number: CA-JNJFOC-20050605295

PATIENT
  Sex: Female
  Weight: 61 kg

DRUGS (24)
  1. REMICADE [Suspect]
     Indication: RHEUMATOID ARTHRITIS
     Route: 042
  2. METHOTREXATE [Concomitant]
  3. LEUCOVORIN [Concomitant]
     Dosage: AFTER METHOTREXATE
  4. VOLTAREN [Concomitant]
  5. LOSEC [Concomitant]
  6. PREDNISONE [Concomitant]
     Dates: end: 20040601
  7. CARBOCAL D400U 500 M [Concomitant]
     Dosage: 1 DOSE=1 TABLET
  8. ALTACE [Concomitant]
  9. DYAZIDE [Concomitant]
  10. DYAZIDE [Concomitant]
     Dosage: 1/2 TAB DAILY
  11. DALMANE [Concomitant]
  12. PREMARIN [Concomitant]
  13. ASCORBIC ACID [Concomitant]
  14. MULTI-VITAMINS [Concomitant]
  15. MULTI-VITAMINS [Concomitant]
  16. MULTI-VITAMINS [Concomitant]
  17. MULTI-VITAMINS [Concomitant]
  18. MULTI-VITAMINS [Concomitant]
  19. MULTI-VITAMINS [Concomitant]
  20. MULTI-VITAMINS [Concomitant]
  21. MULTI-VITAMINS [Concomitant]
  22. FISH OIL [Concomitant]
  23. TYLENOL (CAPLET) [Concomitant]
  24. WESTCORT [Concomitant]
     Dosage: 0.2%

REACTIONS (2)
  - MACULAR HOLE [None]
  - METAMORPHOPSIA [None]
